FAERS Safety Report 22339460 (Version 5)
Quarter: 2023Q4

REPORT INFORMATION
  Report Type: Spontaneous
  Country: CH (occurrence: CH)
  Receive Date: 20230518
  Receipt Date: 20231101
  Transmission Date: 20240109
  Serious: Yes (Other)
  Sender: FDA-Public Use
  Company Number: CH-PHARMAESSENTIA-CH-2023-PEC-001323

PATIENT
  Age: 48 Year
  Sex: Male

DRUGS (2)
  1. BESREMI [Suspect]
     Active Substance: ROPEGINTERFERON ALFA-2B-NJFT
     Indication: Polycythaemia vera
     Dosage: 250 MCG, Q2W
     Route: 058
     Dates: start: 20210901
  2. ASPIRIN [Concomitant]
     Active Substance: ASPIRIN
     Indication: Product used for unknown indication
     Dosage: 100 MILLIGRAM, QD
     Route: 048
     Dates: start: 2016

REACTIONS (2)
  - Raynaud^s phenomenon [Recovering/Resolving]
  - Skin lesion [Recovered/Resolved]

NARRATIVE: CASE EVENT DATE: 20220901
